FAERS Safety Report 25715140 (Version 1)
Quarter: 2025Q3

REPORT INFORMATION
  Report Type: Spontaneous
  Country: JP (occurrence: JP)
  Receive Date: 20250822
  Receipt Date: 20250822
  Transmission Date: 20251021
  Serious: Yes (Hospitalization, Other)
  Sender: RANBAXY
  Company Number: JP-SUN PHARMACEUTICAL INDUSTRIES LTD-2025RR-523839

PATIENT
  Age: 72 Year
  Sex: Male

DRUGS (4)
  1. GEMCITABINE [Suspect]
     Active Substance: GEMCITABINE
     Indication: Chemotherapy
     Route: 042
  2. GEMCITABINE [Suspect]
     Active Substance: GEMCITABINE
     Indication: Cholangiocarcinoma
     Route: 042
  3. CISPLATIN [Suspect]
     Active Substance: CISPLATIN
     Indication: Cholangiocarcinoma
     Route: 065
  4. DURVALUMAB [Concomitant]
     Active Substance: DURVALUMAB
     Indication: Cholangiocarcinoma
     Route: 065

REACTIONS (3)
  - Neutropenia [Recovered/Resolved]
  - Cholangiocarcinoma [Recovering/Resolving]
  - Therapeutic product effect incomplete [Unknown]
